FAERS Safety Report 17909444 (Version 1)
Quarter: 2020Q2

REPORT INFORMATION
  Report Type: Spontaneous
  Country: NL (occurrence: NL)
  Receive Date: 20200617
  Receipt Date: 20200617
  Transmission Date: 20200714
  Serious: Yes (Hospitalization, Disabling)
  Sender: FDA-Public Use
  Company Number: NL-DSJP-DSE-2020-116037

PATIENT

DRUGS (6)
  1. LOSARTAN. [Suspect]
     Active Substance: LOSARTAN
     Indication: ARRHYTHMIA
  2. LIXIANA [Suspect]
     Active Substance: EDOXABAN TOSYLATE
     Indication: HYPERTENSION
  3. AMIODARON                          /00133101/ [Suspect]
     Active Substance: AMIODARONE
     Indication: ARRHYTHMIA
  4. LIXIANA [Suspect]
     Active Substance: EDOXABAN TOSYLATE
     Indication: ARRHYTHMIA
     Dosage: 60 MG, QD
     Dates: start: 202004
  5. AMIODARON                          /00133101/ [Suspect]
     Active Substance: AMIODARONE
     Indication: HYPERTENSION
     Dosage: 200 MG, QD
     Dates: start: 202004
  6. LOSARTAN. [Suspect]
     Active Substance: LOSARTAN
     Indication: HYPERTENSION
     Dosage: 50 MG, QD
     Dates: start: 202004

REACTIONS (4)
  - Decreased appetite [Recovering/Resolving]
  - Insomnia [Recovering/Resolving]
  - Headache [Unknown]
  - Gastrointestinal pain [Recovering/Resolving]

NARRATIVE: CASE EVENT DATE: 20200403
